FAERS Safety Report 16280140 (Version 2)
Quarter: 2019Q3

REPORT INFORMATION
  Report Type: Spontaneous
  Country: US (occurrence: US)
  Receive Date: 20190507
  Receipt Date: 20190711
  Transmission Date: 20191004
  Serious: Yes (Hospitalization)
  Sender: FDA-Public Use
  Company Number: US-AMGEN-USASP2019071190

PATIENT
  Age: 75 Year
  Sex: Male
  Weight: 117.01 kg

DRUGS (2)
  1. ENBREL [Suspect]
     Active Substance: ETANERCEPT
     Indication: PSORIATIC ARTHROPATHY
     Dosage: 1 DOSAGE FORM, QWK
     Route: 065
  2. ENBREL [Suspect]
     Active Substance: ETANERCEPT
     Indication: PSORIASIS
     Dosage: 1 DOSAGE FORM, QWK
     Route: 065
     Dates: start: 2018

REACTIONS (3)
  - Psoriasis [Unknown]
  - Dyspnoea [Unknown]
  - Memory impairment [Unknown]
